FAERS Safety Report 6748398-3 (Version None)
Quarter: 2010Q2

REPORT INFORMATION
  Report Type: 
  Country: None (occurrence: None)
  Receive Date: 20100601
  Receipt Date: 20100517
  Transmission Date: 20101027
  Serious: Yes (Other)
  Sender: FDA-Public Use
  Company Number: US-ASTRAZENECA-2009UW21608

PATIENT
  Age: 634 Month
  Sex: Female
  Weight: 68 kg

DRUGS (5)
  1. SEROQUEL [Suspect]
     Indication: BIPOLAR DISORDER
     Route: 048
     Dates: start: 20040201, end: 20081001
  2. SEROQUEL [Suspect]
     Indication: SCHIZOPHRENIA
     Route: 048
     Dates: start: 20040201, end: 20081001
  3. SEROQUEL [Suspect]
     Route: 048
     Dates: start: 20090616
  4. SEROQUEL [Suspect]
     Route: 048
     Dates: start: 20090616
  5. ABILIFY [Concomitant]
     Dates: start: 20070101, end: 20080101

REACTIONS (3)
  - NEUROPATHY PERIPHERAL [None]
  - PANCREATITIS [None]
  - TYPE 2 DIABETES MELLITUS [None]
